FAERS Safety Report 9019800 (Version 2)
Quarter: 2013Q1

REPORT INFORMATION
  Report Type: Spontaneous
  Country: JP (occurrence: JP)
  Receive Date: 20130118
  Receipt Date: 20130204
  Transmission Date: 20140127
  Serious: Yes (Death, Other)
  Sender: FDA-Public Use
  Company Number: JP-ROCHE-1180925

PATIENT
  Age: 86 None
  Sex: Male
  Weight: 48 kg

DRUGS (11)
  1. HERCEPTIN [Suspect]
     Indication: GASTRIC CANCER
     Route: 041
     Dates: start: 20121212, end: 20121212
  2. TS-1 [Suspect]
     Indication: GASTRIC CANCER
     Route: 048
     Dates: start: 20121210, end: 20121218
  3. BAYASPIRIN [Suspect]
     Indication: PROPHYLAXIS
     Route: 048
     Dates: start: 20121201, end: 20121218
  4. EQUAGESIC [Concomitant]
     Indication: DIABETES MELLITUS
     Route: 048
     Dates: start: 20121201, end: 20121218
  5. FUROSEMIDE [Concomitant]
     Indication: HYPERTENSION
     Route: 048
     Dates: start: 20121201, end: 20121218
  6. LIVALO [Concomitant]
     Indication: HYPERLIPIDAEMIA
     Route: 048
     Dates: start: 20121201, end: 20121218
  7. ALFAROL [Concomitant]
     Indication: PROPHYLAXIS
     Route: 048
     Dates: start: 20121201, end: 20121218
  8. AMARYL [Concomitant]
     Indication: DIABETES MELLITUS
     Route: 048
     Dates: start: 20121201, end: 20121218
  9. AMLODIPINE BESILATE/TELMISARTAN [Concomitant]
     Indication: HYPERTENSION
     Dosage: DRUG REPORTED AS : MICAMLO
     Route: 048
     Dates: start: 20121201, end: 20121218
  10. FEBURIC [Concomitant]
     Indication: HYPERURICAEMIA
     Route: 048
     Dates: start: 20121201, end: 20121218
  11. RABEPRAZOLE SODIUM [Concomitant]
     Indication: PROPHYLAXIS
     Route: 048
     Dates: start: 20121201, end: 20121218

REACTIONS (3)
  - Gastrointestinal haemorrhage [Fatal]
  - Depressed level of consciousness [Not Recovered/Not Resolved]
  - Fall [Unknown]
